FAERS Safety Report 19134346 (Version 1)
Quarter: 2021Q2

REPORT INFORMATION
  Report Type: Spontaneous
  Country: US (occurrence: US)
  Receive Date: 20210413
  Receipt Date: 20210413
  Transmission Date: 20210717
  Serious: No
  Sender: FDA-Public Use
  Company Number: None

PATIENT
  Sex: Female

DRUGS (2)
  1. IMATINIB MESYLATE 400 MG TEVA PHARMACEUTICALS USA [Suspect]
     Active Substance: IMATINIB MESYLATE
     Indication: CHRONIC MYELOID LEUKAEMIA
     Route: 048
     Dates: start: 20190518
  2. IMATINIB MESYLATE 400 MG TEVA PHARMACEUTICALS USA [Suspect]
     Active Substance: IMATINIB MESYLATE
     Indication: GENE MUTATION
     Route: 048
     Dates: start: 20190518

REACTIONS (2)
  - Dizziness [None]
  - COVID-19 immunisation [None]
